FAERS Safety Report 7061729-2 (Version None)
Quarter: 2010Q4

REPORT INFORMATION
  Report Type: 
  Country: None (occurrence: None)
  Receive Date: 20101026
  Receipt Date: 20101014
  Transmission Date: 20110411
  Serious: Yes (Hospitalization)
  Sender: FDA-Public Use
  Company Number: US-ROCHE-724965

PATIENT
  Sex: Male
  Weight: 98 kg

DRUGS (24)
  1. BEVACIZUMAB [Suspect]
     Route: 065
     Dates: start: 20100504, end: 20100715
  2. RAD001 [Suspect]
     Route: 048
  3. LBH589 [Suspect]
     Route: 065
     Dates: start: 20100504, end: 20100715
  4. JANUMET [Concomitant]
     Dosage: DOSE: 50/1000MG
     Route: 048
  5. ASPIRIN [Concomitant]
     Route: 048
  6. CRESTOR [Concomitant]
     Route: 048
  7. GLIPIZIDE [Concomitant]
     Route: 048
  8. POTASSIUM CHLORIDE [Concomitant]
     Route: 048
  9. OXYCODONE HCL [Concomitant]
     Route: 048
  10. OXYCODONE HCL [Concomitant]
     Dosage: FREQUENCY: Q. 6 H. P.R.N.
     Route: 048
  11. OXYCONTIN [Concomitant]
     Dosage: FREQUENCY: Q.12 H.
     Route: 048
  12. METOPROLOL [Concomitant]
     Indication: HYPERTENSION
     Route: 048
  13. M.V.I. [Concomitant]
     Dosage: DRUG REPORTED AS: MVI'S
  14. LOVENOX [Concomitant]
     Route: 058
     Dates: start: 20000622
  15. MAALOX [Concomitant]
     Dosage: DRUG REPORTED AS: MALOX
  16. ADVAIR DISKUS 100/50 [Concomitant]
     Dosage: DOSE: 250/50
     Route: 055
  17. ASTELIN [Concomitant]
     Route: 048
  18. FUROSEMIDE [Concomitant]
     Dosage: FREQUENCY: P.R.N.
     Route: 048
  19. VITAMIN B6 [Concomitant]
  20. ASCORBIC ACID [Concomitant]
  21. VITAMIN E [Concomitant]
  22. CALCIUM [Concomitant]
  23. WARFARIN SODIUM [Concomitant]
  24. LASIX [Concomitant]
     Dosage: FREQUENCY: PRN

REACTIONS (9)
  - ABDOMINAL PAIN [None]
  - BLOOD CREATININE INCREASED [None]
  - CHEST PAIN [None]
  - CHOLECYSTITIS [None]
  - DEEP VEIN THROMBOSIS [None]
  - HYPERBILIRUBINAEMIA [None]
  - HYPERTENSION [None]
  - IMPAIRED GASTRIC EMPTYING [None]
  - VOMITING [None]
